FAERS Safety Report 9706757 (Version 1)
Quarter: 2013Q4

REPORT INFORMATION
  Report Type: Spontaneous
  Country: US (occurrence: None)
  Receive Date: 20131122
  Receipt Date: 20131122
  Transmission Date: 20140711
  Serious: Yes (Other)
  Sender: FDA-Public Use
  Company Number: None

PATIENT
  Age: 7 Year
  Sex: Male
  Weight: 24.4 kg

DRUGS (2)
  1. CLONIDINE TABLETS 0.3 MG [Suspect]
     Indication: TIC
     Route: 048
     Dates: start: 20131114, end: 20131116
  2. CLONIDINE TABLETS 0.3 MG [Suspect]
     Indication: ATTENTION DEFICIT/HYPERACTIVITY DISORDER
     Route: 048
     Dates: start: 20131114, end: 20131116

REACTIONS (4)
  - Abdominal pain upper [None]
  - Chills [None]
  - Nasopharyngitis [None]
  - Skin discolouration [None]
